FAERS Safety Report 25910591 (Version 2)
Quarter: 2025Q4

REPORT INFORMATION
  Report Type: Report from Study
  Country: US (occurrence: US)
  Receive Date: 20251013
  Receipt Date: 20251229
  Transmission Date: 20260117
  Serious: Yes (Hospitalization, Other)
  Sender: ALEXION PHARMACEUTICALS
  Company Number: US-AstraZeneca-CH-00966217A

PATIENT
  Sex: Female

DRUGS (1)
  1. RAVULIZUMAB [Suspect]
     Active Substance: RAVULIZUMAB
     Dosage: UNK
     Route: 065

REACTIONS (17)
  - Cerebrovascular accident [Unknown]
  - Adverse drug reaction [Unknown]
  - Nervousness [Unknown]
  - Hemiplegia [Unknown]
  - Aphasia [Unknown]
  - Presyncope [Unknown]
  - Swelling face [Unknown]
  - Seizure [Recovered/Resolved]
  - Fatigue [Unknown]
  - Hypersensitivity [Recovered/Resolved]
  - Balance disorder [Unknown]
  - Anal incontinence [Unknown]
  - Visual impairment [Unknown]
  - Oropharyngeal pain [Unknown]
  - Fungal infection [Unknown]
  - Vein rupture [Unknown]
  - Musculoskeletal stiffness [Unknown]
